FAERS Safety Report 13372697 (Version 1)
Quarter: 2017Q1

REPORT INFORMATION
  Report Type: Spontaneous
  Country: US (occurrence: US)
  Receive Date: 20170324
  Receipt Date: 20170324
  Transmission Date: 20170429
  Serious: Yes (Other)
  Sender: FDA-Public Use
  Company Number: None

PATIENT
  Age: 63 Year
  Sex: Female
  Weight: 51.75 kg

DRUGS (3)
  1. WOMENS LAXATIVE [Suspect]
     Active Substance: BISACODYL
     Indication: BOWEL PREPARATION
     Dosage: ?          QUANTITY:30 TABLET(S);?
     Route: 048
     Dates: start: 20170207, end: 20170208
  2. VITAMIN D [Concomitant]
     Active Substance: CHOLECALCIFEROL
  3. ATIVAN [Concomitant]
     Active Substance: LORAZEPAM

REACTIONS (4)
  - Loss of consciousness [None]
  - Muscle spasms [None]
  - Concussion [None]
  - Nausea [None]

NARRATIVE: CASE EVENT DATE: 20170207
